FAERS Safety Report 16769667 (Version 1)
Quarter: 2019Q3

REPORT INFORMATION
  Report Type: Spontaneous
  Country: DE (occurrence: DE)
  Receive Date: 20190903
  Receipt Date: 20190903
  Transmission Date: 20191005
  Serious: Yes (Other)
  Sender: FDA-Public Use
  Company Number: PHHY2019DE058254

PATIENT
  Sex: Female

DRUGS (2)
  1. COSENTYX [Suspect]
     Active Substance: SECUKINUMAB
     Indication: PSORIATIC ARTHROPATHY
     Dosage: UNK
     Route: 065
  2. COSENTYX [Suspect]
     Active Substance: SECUKINUMAB
     Dosage: 300 MG, QMO
     Route: 065

REACTIONS (7)
  - Cardiovascular disorder [Unknown]
  - Dizziness [Unknown]
  - Influenza [Unknown]
  - Intraocular pressure increased [Unknown]
  - Hypotension [Unknown]
  - Feeling cold [Unknown]
  - Macular oedema [Unknown]

NARRATIVE: CASE EVENT DATE: 201901
